FAERS Safety Report 10464825 (Version 1)
Quarter: 2014Q3

REPORT INFORMATION
  Report Type: Report from Study
  Country: JP (occurrence: JP)
  Receive Date: 20140919
  Receipt Date: 20140919
  Transmission Date: 20150326
  Serious: Yes (Other)
  Sender: FDA-Public Use
  Company Number: JP-BRISTOL-MYERS SQUIBB COMPANY-21390620

PATIENT
  Age: 80 Year
  Sex: Male
  Weight: 67 kg

DRUGS (9)
  1. IRBETAN [Concomitant]
     Active Substance: IRBESARTAN
     Indication: HYPERTENSION
  2. URSO [Concomitant]
     Active Substance: URSODIOL
     Indication: LIVER DISORDER
  3. GLYCRON [Concomitant]
     Indication: LIVER DISORDER
  4. URSO [Concomitant]
     Active Substance: URSODIOL
     Indication: BILE DUCT STONE
  5. ELIQUIS [Suspect]
     Active Substance: APIXABAN
     Indication: THROMBOSIS PROPHYLAXIS
     Route: 048
     Dates: start: 20140515, end: 20140801
  6. SUNRYTHM [Concomitant]
     Active Substance: PILSICAINIDE HYDROCHLORIDE
  7. GLYCRON [Concomitant]
     Indication: BILE DUCT STONE
  8. NORVASC [Concomitant]
     Active Substance: AMLODIPINE BESYLATE
     Indication: HYPERTENSION
  9. RABEPRAZOLE [Concomitant]
     Active Substance: RABEPRAZOLE
     Indication: GASTRITIS

REACTIONS (2)
  - Pyrexia [Unknown]
  - Liver disorder [Recovered/Resolved]

NARRATIVE: CASE EVENT DATE: 201407
